FAERS Safety Report 11011314 (Version 2)
Quarter: 2015Q2

REPORT INFORMATION
  Report Type: Spontaneous
  Country: NL (occurrence: NL)
  Receive Date: 20150410
  Receipt Date: 20150423
  Transmission Date: 20150821
  Serious: No
  Sender: FDA-Public Use
  Company Number: PHHY2015NL042113

PATIENT
  Sex: Male

DRUGS (1)
  1. GILENYA [Suspect]
     Active Substance: FINGOLIMOD HYDROCHLORIDE
     Indication: MULTIPLE SCLEROSIS
     Route: 065

REACTIONS (8)
  - Feeling abnormal [Unknown]
  - Vision blurred [Recovering/Resolving]
  - Fatigue [Unknown]
  - Band sensation [Unknown]
  - Palpitations [Unknown]
  - Insomnia [Unknown]
  - Eye pain [Unknown]
  - Visual acuity reduced [Recovering/Resolving]
